FAERS Safety Report 25496644 (Version 7)
Quarter: 2025Q3

REPORT INFORMATION
  Report Type: Spontaneous
  Country: CA (occurrence: CA)
  Receive Date: 20250630
  Receipt Date: 20250808
  Transmission Date: 20251020
  Serious: Yes (Hospitalization, Other)
  Sender: TEVA
  Company Number: CA-TEVA-VS-3345591

PATIENT
  Age: 68 Year
  Sex: Female

DRUGS (11)
  1. METHOTREXATE [Suspect]
     Active Substance: METHOTREXATE
     Indication: Rheumatoid arthritis
     Route: 065
  2. METHOTREXATE [Suspect]
     Active Substance: METHOTREXATE
     Indication: Rheumatoid arthritis
     Route: 065
  3. HYRIMOZ [Suspect]
     Active Substance: ADALIMUMAB-ADAZ
     Indication: Sjogren^s syndrome
     Route: 065
  4. HYRIMOZ [Suspect]
     Active Substance: ADALIMUMAB-ADAZ
     Indication: Sjogren^s syndrome
     Route: 065
  5. ADALIMUMAB [Concomitant]
     Active Substance: ADALIMUMAB
     Indication: Product used for unknown indication
     Route: 058
  6. DOXYCYCLINE [Concomitant]
     Active Substance: DOXYCYCLINE
     Indication: Product used for unknown indication
     Route: 048
  7. ADALIMUMAB [Suspect]
     Active Substance: ADALIMUMAB
     Indication: Rheumatoid arthritis
     Route: 065
  8. ADALIMUMAB [Suspect]
     Active Substance: ADALIMUMAB
     Indication: Rheumatoid arthritis
     Route: 065
  9. ADALIMUMAB [Suspect]
     Active Substance: ADALIMUMAB
     Indication: Rheumatoid arthritis
     Route: 058
  10. PREDNISONE [Concomitant]
     Active Substance: PREDNISONE
     Indication: Product used for unknown indication
     Route: 048
  11. METHYLPREDNISOLONE [Concomitant]
     Active Substance: METHYLPREDNISOLONE
     Indication: Product used for unknown indication
     Route: 042

REACTIONS (18)
  - Hypersensitivity pneumonitis [Recovering/Resolving]
  - Product use in unapproved indication [Recovering/Resolving]
  - Cholestasis [Recovering/Resolving]
  - Acute pulmonary histoplasmosis [Recovering/Resolving]
  - Respiratory failure [Recovering/Resolving]
  - Histoplasmosis disseminated [Recovering/Resolving]
  - Granulomatous liver disease [Recovering/Resolving]
  - Weight decreased [Unknown]
  - Nausea [Unknown]
  - Histoplasmosis [Unknown]
  - Chills [Unknown]
  - Herpes simplex [Unknown]
  - Vomiting [Unknown]
  - Night sweats [Unknown]
  - Headache [Unknown]
  - Cough [Unknown]
  - Hypertransaminasaemia [Recovering/Resolving]
  - Pyrexia [Unknown]
